FAERS Safety Report 19905012 (Version 1)
Quarter: 2021Q4

REPORT INFORMATION
  Report Type: Report from Study
  Country: DE (occurrence: DE)
  Receive Date: 20211001
  Receipt Date: 20211001
  Transmission Date: 20220303
  Serious: Yes (Other)
  Sender: FDA-Public Use
  Company Number: None

PATIENT
  Age: 33 Year
  Sex: Male

DRUGS (5)
  1. LORAZEPAM [Interacting]
     Active Substance: LORAZEPAM
  2. MORPHINE [Interacting]
     Active Substance: MORPHINE
  3. CODEINE [Interacting]
     Active Substance: CODEINE
  4. DRONABINOL [Suspect]
     Active Substance: DRONABINOL
  5. ETORICOXIB [Concomitant]
     Active Substance: ETORICOXIB

REACTIONS (11)
  - Irritability [Unknown]
  - Drug abuse [Unknown]
  - Mental disorder [Unknown]
  - Mood swings [Unknown]
  - Psychotic behaviour [Unknown]
  - Personality change [Unknown]
  - Drug interaction [Unknown]
  - Thinking abnormal [Unknown]
  - Drug dependence [Unknown]
  - Memory impairment [Unknown]
  - Aggression [Unknown]
